FAERS Safety Report 8494537-6 (Version None)
Quarter: 2012Q2

REPORT INFORMATION
  Report Type: 
  Country: None (occurrence: None)
  Receive Date: 20120627
  Receipt Date: 20120606
  Transmission Date: 20120825
  Serious: Yes (Other)
  Sender: FDA-Public Use
  Company Number: JP-2012-14656

PATIENT
  Age: 80 Year
  Sex: Male
  Weight: 96 kg

DRUGS (13)
  1. HANP (CARPERITIDE) INJECTION [Concomitant]
  2. KREMEZIN (CHARCOAL, ACTIVATED) GRANULES [Concomitant]
  3. SAMSCA [Suspect]
     Indication: FLUID RETENTION
     Dosage: 15 MG MILLIGRAM(S), QPM, ORAL, 15 MG MILLIGRAM(S), QAM, ORAL, 15 MG MILLIGRAM(S), QAM, ORAL
     Route: 048
     Dates: start: 20120209, end: 20120214
  4. SAMSCA [Suspect]
     Indication: FLUID RETENTION
     Dosage: 15 MG MILLIGRAM(S), QPM, ORAL, 15 MG MILLIGRAM(S), QAM, ORAL, 15 MG MILLIGRAM(S), QAM, ORAL
     Route: 048
     Dates: start: 20120130, end: 20120130
  5. SAMSCA [Suspect]
     Indication: FLUID RETENTION
     Dosage: 15 MG MILLIGRAM(S), QPM, ORAL, 15 MG MILLIGRAM(S), QAM, ORAL, 15 MG MILLIGRAM(S), QAM, ORAL
     Route: 048
     Dates: start: 20120131, end: 20120207
  6. REVATIO (SILDENAFIL CITRATE) TABLET [Concomitant]
  7. CARELOAD LA (BERAPROST SODIUM) TABLET [Concomitant]
  8. DIART (AZOSEMIDE) TABLET [Concomitant]
  9. LASIX [Concomitant]
  10. INDAPAMIDE [Concomitant]
  11. CARVEDILOL [Concomitant]
  12. URINORM (BENZBROMARONE) TABLET [Concomitant]
  13. LASIX [Concomitant]

REACTIONS (12)
  - RED BLOOD CELL COUNT DECREASED [None]
  - GENERALISED OEDEMA [None]
  - PULMONARY HYPERTENSION [None]
  - DYSPNOEA [None]
  - HAEMOGLOBIN DECREASED [None]
  - VENTRICULAR TACHYCARDIA [None]
  - CARDIAC FAILURE CONGESTIVE [None]
  - HAEMATURIA [None]
  - THIRST [None]
  - ARRHYTHMIA [None]
  - BLOOD UREA INCREASED [None]
  - CONDITION AGGRAVATED [None]
